FAERS Safety Report 12114894 (Version 3)
Quarter: 2016Q1

REPORT INFORMATION
  Report Type: Spontaneous
  Country: NO (occurrence: NO)
  Receive Date: 20160225
  Receipt Date: 20160330
  Transmission Date: 20160526
  Serious: Yes (Hospitalization, Other)
  Sender: FDA-Public Use
  Company Number: NO-PFIZER INC-2016110259

PATIENT
  Age: 64 Year
  Sex: Female

DRUGS (3)
  1. NEURONTIN [Suspect]
     Active Substance: GABAPENTIN
     Indication: POLYNEUROPATHY
     Dosage: 600 MG, 3X/DAY
     Dates: start: 20151126, end: 20160222
  2. PARACETAMOL [Concomitant]
     Active Substance: ACETAMINOPHEN
     Indication: SJOGREN^S SYNDROME
     Dosage: 1 G, IN THE EVENING, RARE USE
  3. IBUX [Concomitant]
     Active Substance: IBUPROFEN
     Indication: SJOGREN^S SYNDROME
     Dosage: 400 MG, EVENING, RARE USE

REACTIONS (15)
  - Dry mouth [Not Recovered/Not Resolved]
  - Activities of daily living impaired [Recovered/Resolved]
  - Reaction to drug excipients [Unknown]
  - Sjogren^s syndrome [Unknown]
  - Dizziness [Recovered/Resolved]
  - Activities of daily living impaired [Recovered/Resolved]
  - Condition aggravated [Unknown]
  - Burning sensation [Recovered/Resolved]
  - Swollen tongue [Recovered/Resolved]
  - Feeling hot [Recovering/Resolving]
  - Pain [Recovering/Resolving]
  - Nausea [Unknown]
  - Abdominal discomfort [Recovered/Resolved]
  - Hypoaesthesia [Recovered/Resolved]
  - Drug effect delayed [Unknown]

NARRATIVE: CASE EVENT DATE: 2015
